FAERS Safety Report 5772275-8 (Version None)
Quarter: 2008Q2

REPORT INFORMATION
  Report Type: 
  Country: None (occurrence: None)
  Receive Date: 20080613
  Receipt Date: 20080604
  Transmission Date: 20081010
  Serious: Yes (Other)
  Sender: FDA-Public Use
  Company Number: PHHY2008JP09887

PATIENT
  Age: 59 Year
  Sex: Female

DRUGS (1)
  1. DICLOFENAC SODIUM [Suspect]
     Indication: ABDOMINAL PAIN
     Route: 065

REACTIONS (2)
  - JEJUNAL STENOSIS [None]
  - JEJUNAL ULCER [None]
